FAERS Safety Report 6607513-2 (Version None)
Quarter: 2010Q1

REPORT INFORMATION
  Report Type: 
  Country: None (occurrence: None)
  Receive Date: 20100301
  Receipt Date: 20100216
  Transmission Date: 20100710
  Serious: Yes (Hospitalization)
  Sender: FDA-Public Use
  Company Number: PHHY2010US04210

PATIENT
  Sex: Female

DRUGS (5)
  1. RECLAST [Suspect]
     Dosage: UNK
     Dates: start: 20100104
  2. FOSAMAX [Suspect]
  3. METOPROLOL TARTRATE [Concomitant]
  4. ACE INHIBITORS AND DIURETICS [Concomitant]
  5. METFORMIN HYDROCHLORIDE [Concomitant]
     Indication: DIABETES MELLITUS
     Route: 048

REACTIONS (17)
  - ARTHRALGIA [None]
  - ASTHENIA [None]
  - BLOOD CREATININE INCREASED [None]
  - BRONCHITIS [None]
  - COSTOVERTEBRAL ANGLE TENDERNESS [None]
  - DIARRHOEA [None]
  - FATIGUE [None]
  - FEELING ABNORMAL [None]
  - FLANK PAIN [None]
  - INFLUENZA [None]
  - NAUSEA [None]
  - PAIN [None]
  - PNEUMONIA [None]
  - RENAL FAILURE [None]
  - URINE FLOW DECREASED [None]
  - URINE OUTPUT DECREASED [None]
  - VOMITING [None]
